FAERS Safety Report 8830348 (Version 3)
Quarter: 2012Q4

REPORT INFORMATION
  Report Type: 
  Country: US (occurrence: US)
  Receive Date: 20121009
  Receipt Date: 20121024
  Transmission Date: 20130627
  Serious: No
  Sender: FDA-Public Use
  Company Number: US-PFIZER INC-2012245298

PATIENT
  Age: 55 Year
  Sex: Female
  Weight: 65.76 kg

DRUGS (5)
  1. ESTRING [Suspect]
     Indication: DYSURIA
     Dosage: 2 mg, UNK
     Route: 067
     Dates: start: 20110810
  2. ESTRING [Suspect]
     Indication: URINARY INCONTINENCE
  3. ESTRING [Suspect]
     Indication: ATROPHIC VULVOVAGINITIS
  4. VITAMIN D [Concomitant]
     Dosage: 50000 IU, UNK
  5. MENTAX [Concomitant]
     Indication: ANAEMIA
     Dosage: UNK

REACTIONS (3)
  - Product quality issue [Unknown]
  - Drug ineffective [Unknown]
  - Pain [Unknown]
